FAERS Safety Report 9337706 (Version 2)
Quarter: 2013Q3

REPORT INFORMATION
  Report Type: Spontaneous
  Country: FR (occurrence: FR)
  Receive Date: 20130607
  Receipt Date: 20130828
  Transmission Date: 20140515
  Serious: Yes (Hospitalization, Other)
  Sender: FDA-Public Use
  Company Number: FR-ASTRAZENECA-2013SE38425

PATIENT
  Age: 17689 Day
  Sex: Male
  Weight: 72 kg

DRUGS (5)
  1. XEROQUEL [Suspect]
     Indication: DELUSIONAL DISORDER, UNSPECIFIED TYPE
     Route: 048
     Dates: start: 20130522, end: 20130529
  2. PLAVIX [Concomitant]
  3. KARDEGIC [Concomitant]
  4. INEXIUM [Concomitant]
     Indication: GASTRITIS
  5. TRANXENE [Concomitant]

REACTIONS (2)
  - Chest pain [Recovered/Resolved]
  - Palpitations [Unknown]
